FAERS Safety Report 10558726 (Version 2)
Quarter: 2014Q4

REPORT INFORMATION
  Report Type: Spontaneous
  Country: ES (occurrence: ES)
  Receive Date: 20141031
  Receipt Date: 20141219
  Transmission Date: 20150529
  Serious: Yes (Hospitalization, Other)
  Sender: FDA-Public Use
  Company Number: ES-AMGEN-ESPSP2014083381

PATIENT
  Age: 66 Year
  Sex: Female
  Weight: 53 kg

DRUGS (4)
  1. LEXATIN                            /00424801/ [Concomitant]
     Active Substance: BROMAZEPAM
     Indication: INSOMNIA
     Dosage: UNK
  2. PROLIA [Suspect]
     Active Substance: DENOSUMAB
     Indication: OSTEOPOROSIS
     Dosage: 1 UNK, Q6MO
     Route: 058
     Dates: start: 20141015
  3. OMEPRAZOL                          /00661201/ [Concomitant]
     Active Substance: OMEPRAZOLE
     Indication: DYSPEPSIA
     Dosage: 20 MG, UNK
     Route: 048
  4. DEMILOS [Suspect]
     Active Substance: CALCIUM CARBONATE\CHOLECALCIFEROL
     Indication: OSTEOPOROSIS
     Dosage: 1 UNK, QD
     Route: 048
     Dates: start: 20140925, end: 20141022

REACTIONS (32)
  - Loss of consciousness [Recovered/Resolved]
  - Paraesthesia [Not Recovered/Not Resolved]
  - Stress [Unknown]
  - Nausea [Unknown]
  - Constipation [Unknown]
  - Fear [None]
  - Muscular weakness [Unknown]
  - Pharyngeal oedema [Recovering/Resolving]
  - Dysphagia [Unknown]
  - Oral discomfort [Unknown]
  - Nervousness [Unknown]
  - Hypotension [Recovered/Resolved]
  - Hypoaesthesia [Recovered/Resolved]
  - Dysstasia [Unknown]
  - Abdominal discomfort [Not Recovered/Not Resolved]
  - Aphonia [Not Recovered/Not Resolved]
  - Oropharyngeal pain [Not Recovered/Not Resolved]
  - Limb discomfort [Unknown]
  - Headache [Recovered/Resolved]
  - Dizziness [Recovered/Resolved]
  - Swollen tongue [Recovered/Resolved]
  - Feeling abnormal [Unknown]
  - Dysphonia [Not Recovered/Not Resolved]
  - Blood pressure diastolic decreased [None]
  - Malaise [None]
  - Heart rate decreased [Recovered/Resolved]
  - Anxiety [Not Recovered/Not Resolved]
  - Mouth swelling [Recovering/Resolving]
  - Pyrexia [Recovered/Resolved]
  - Flushing [Unknown]
  - Vomiting [Not Recovered/Not Resolved]
  - Fatigue [Not Recovered/Not Resolved]

NARRATIVE: CASE EVENT DATE: 20141022
